FAERS Safety Report 19770842 (Version 1)
Quarter: 2021Q3

REPORT INFORMATION
  Report Type: Spontaneous
  Country: US (occurrence: US)
  Receive Date: 20210901
  Receipt Date: 20210901
  Transmission Date: 20211014
  Serious: Yes (Hospitalization, Other)
  Sender: FDA-Public Use
  Company Number: US-LANNETT COMPANY, INC.-US-2021LAN000300

PATIENT
  Age: 85 Year
  Sex: Female

DRUGS (4)
  1. LEVOTHYROXINE SODIUM. [Suspect]
     Active Substance: LEVOTHYROXINE SODIUM
     Indication: PRODUCT USED FOR UNKNOWN INDICATION
     Dosage: UNK
     Route: 065
  2. ENTRESTO [Suspect]
     Active Substance: SACUBITRIL\VALSARTAN
     Indication: PRODUCT USED FOR UNKNOWN INDICATION
     Dosage: UNK
     Route: 048
     Dates: start: 202002
  3. ELIQUIS [Suspect]
     Active Substance: APIXABAN
     Indication: PRODUCT USED FOR UNKNOWN INDICATION
     Dosage: UNK
     Route: 065
     Dates: start: 202002, end: 2020
  4. ELIQUIS [Suspect]
     Active Substance: APIXABAN
     Dosage: DOSE DECREASED
     Dates: start: 2020

REACTIONS (11)
  - Pneumonia [Unknown]
  - Cardiac failure congestive [Unknown]
  - Loss of personal independence in daily activities [Unknown]
  - Blister [Not Recovered/Not Resolved]
  - Upper-airway cough syndrome [Unknown]
  - Throat clearing [Unknown]
  - Dyspnoea [Unknown]
  - Confusional state [Unknown]
  - Swelling [Unknown]
  - Epistaxis [Unknown]
  - Visual impairment [Unknown]

NARRATIVE: CASE EVENT DATE: 2020
